FAERS Safety Report 17260027 (Version 1)
Quarter: 2020Q1

REPORT INFORMATION
  Report Type: Spontaneous
  Country: DE (occurrence: DE)
  Receive Date: 20200111
  Receipt Date: 20200111
  Transmission Date: 20200409
  Serious: Yes (Death, Life-Threatening, Other)
  Sender: FDA-Public Use
  Company Number: DE-ACCORD-169510

PATIENT
  Age: 67 Year
  Sex: Female
  Weight: 92 kg

DRUGS (2)
  1. GEMCITABINE HEXAL [Concomitant]
     Indication: THYROID CANCER
     Dosage: INFUSION OVER 30 MINUTES
     Route: 042
     Dates: start: 20191205
  2. OXALIPLATIN ACCORD [Suspect]
     Active Substance: OXALIPLATIN
     Indication: THYROID CANCER
     Dosage: INFUSION OVER 2 HOURS
     Route: 042
     Dates: start: 20191205

REACTIONS (6)
  - Disseminated intravascular coagulation [Fatal]
  - Pulmonary oedema [Fatal]
  - Multiple organ dysfunction syndrome [Fatal]
  - Systemic inflammatory response syndrome [Fatal]
  - Anaphylactic reaction [Fatal]
  - Platelet count decreased [Fatal]

NARRATIVE: CASE EVENT DATE: 20191206
